FAERS Safety Report 8806256 (Version 1)
Quarter: 2012Q4

REPORT INFORMATION
  Report Type: 
  Country: JP (occurrence: JP)
  Receive Date: 20120925
  Receipt Date: 20120925
  Transmission Date: 20130627
  Serious: Yes (Other)
  Sender: FDA-Public Use
  Company Number: PHHY2012JP082078

PATIENT

DRUGS (1)
  1. TEGRETOL [Suspect]
     Indication: HEADACHE
     Route: 048

REACTIONS (3)
  - Altered state of consciousness [Unknown]
  - Fall [Unknown]
  - Accident [Unknown]
